FAERS Safety Report 8409699-6 (Version None)
Quarter: 2012Q2

REPORT INFORMATION
  Report Type: 
  Country: None (occurrence: None)
  Receive Date: 20120529
  Receipt Date: 20120516
  Transmission Date: 20120825
  Serious: Yes (Hospitalization)
  Sender: FDA-Public Use
  Company Number: ACO_30410_2012

PATIENT
  Age: 49 Year
  Sex: Female
  Weight: 85.7 kg

DRUGS (16)
  1. AMPYRA [Suspect]
     Indication: GAIT DISTURBANCE
     Dosage: 10 MG, BID, ORAL
     Route: 048
     Dates: start: 20100101
  2. TIZANIDINE HYDROCHLORIDE [Concomitant]
  3. MICROBID (SULFAMETHOXAZOLE, TRIMETHOPRIM) [Concomitant]
  4. COPAXONE [Suspect]
     Indication: MULTIPLE SCLEROSIS
     Dates: end: 20120101
  5. AMBIEN [Concomitant]
  6. ADDERALL 10 [Concomitant]
  7. NAMENDA [Concomitant]
  8. LYRICA [Concomitant]
  9. CYMBALTA [Concomitant]
  10. MARINOL (ALLOPURINOL) [Concomitant]
  11. VOLTAREN [Concomitant]
  12. PHENERGAN [Concomitant]
  13. SAVELLA 9MILNACIPRAN HYDROCHLORIDE) [Concomitant]
  14. KLONOPIN [Concomitant]
  15. ACYCLOVIR [Concomitant]
  16. NORCO [Concomitant]

REACTIONS (5)
  - CONCUSSION [None]
  - ROAD TRAFFIC ACCIDENT [None]
  - ANKLE FRACTURE [None]
  - MULTIPLE SCLEROSIS RELAPSE [None]
  - FALL [None]
